FAERS Safety Report 4901850-5 (Version None)
Quarter: 2006Q1

REPORT INFORMATION
  Report Type: 
  Country: None (occurrence: None)
  Receive Date: 20060202
  Receipt Date: 20060202
  Transmission Date: 20060701
  Serious: No
  Sender: FDA-Public Use
  Company Number: None

PATIENT
  Age: 56 Year
  Sex: Female
  Weight: 58.514 kg

DRUGS (2)
  1. CEFUROXIME AXETIL [Suspect]
     Dosage: 250 MG BID PO
     Route: 048
     Dates: start: 20020401
  2. CEFUROXIME AXETIL [Suspect]
     Dosage: 250 MG BID PO
     Route: 048
     Dates: start: 20020515

REACTIONS (6)
  - CHEST DISCOMFORT [None]
  - CONDITION AGGRAVATED [None]
  - DYSGEUSIA [None]
  - FEELING ABNORMAL [None]
  - GASTROOESOPHAGEAL REFLUX DISEASE [None]
  - THERAPEUTIC RESPONSE UNEXPECTED WITH DRUG SUBSTITUTION [None]
